FAERS Safety Report 8152047-X (Version None)
Quarter: 2012Q1

REPORT INFORMATION
  Report Type: 
  Country: None (occurrence: None)
  Receive Date: 20120214
  Receipt Date: 20120203
  Transmission Date: 20120608
  Serious: Yes (Hospitalization)
  Sender: FDA-Public Use
  Company Number: 2012MA001827

PATIENT
  Sex: Male

DRUGS (1)
  1. LORAZEPAM [Suspect]

REACTIONS (1)
  - BRADYPHRENIA [None]
